FAERS Safety Report 5608336-3 (Version None)
Quarter: 2008Q1

REPORT INFORMATION
  Report Type: 
  Country: None (occurrence: None)
  Receive Date: 20080130
  Receipt Date: 20080123
  Transmission Date: 20080703
  Serious: Yes (Congenital Anomaly)
  Sender: FDA-Public Use
  Company Number: SE-BOEHRINGER INGELHEIM GMBH, GERMANY-2008-DE-00439GD

PATIENT

DRUGS (4)
  1. MORPHINE [Suspect]
     Route: 064
  2. DIAZEPAM [Suspect]
     Route: 064
  3. PAROXETINE [Suspect]
     Route: 064
  4. DEXTROPROPOXYPHENE [Suspect]
     Route: 064

REACTIONS (2)
  - ANAL ATRESIA [None]
  - HYPOSPADIAS [None]
